FAERS Safety Report 11664902 (Version 3)
Quarter: 2015Q4

REPORT INFORMATION
  Report Type: Report from Study
  Country: FR (occurrence: FR)
  Receive Date: 20151027
  Receipt Date: 20151207
  Transmission Date: 20160304
  Serious: Yes (Death, Hospitalization)
  Sender: FDA-Public Use
  Company Number: FR-SA-2015SA168959

PATIENT
  Age: 46 Year
  Sex: Female

DRUGS (2)
  1. DEXAMETHASONE. [Concomitant]
     Active Substance: DEXAMETHASONE
     Dates: start: 2015, end: 2015
  2. CAMPATH [Suspect]
     Active Substance: ALEMTUZUMAB
     Indication: ADULT T-CELL LYMPHOMA/LEUKAEMIA REFRACTORY
     Route: 058
     Dates: start: 20150211, end: 20150309

REACTIONS (23)
  - Immunosuppression [Fatal]
  - Ill-defined disorder [Unknown]
  - Thrombocytopenia [Fatal]
  - Pneumonitis [Fatal]
  - Gastroenteritis [Fatal]
  - Cardiac arrest [Fatal]
  - Cyanosis [Fatal]
  - Abdominal pain upper [Fatal]
  - Neutropenia [Fatal]
  - Septic shock [Fatal]
  - Oxygen saturation decreased [Fatal]
  - Tachypnoea [Fatal]
  - Renal failure [Fatal]
  - Anaemia [Fatal]
  - Hyperhidrosis [Fatal]
  - Diarrhoea [Fatal]
  - Pyrexia [Fatal]
  - Cough [Fatal]
  - Chest pain [Fatal]
  - Vomiting [Fatal]
  - Leukopenia [Fatal]
  - Sinus tachycardia [Fatal]
  - Hypotension [Fatal]

NARRATIVE: CASE EVENT DATE: 2015
